FAERS Safety Report 20855035 (Version 2)
Quarter: 2022Q2

REPORT INFORMATION
  Report Type: Spontaneous
  Country: AR (occurrence: AR)
  Receive Date: 20220520
  Receipt Date: 20220525
  Transmission Date: 20220720
  Serious: Yes (Hospitalization, Other)
  Sender: FDA-Public Use
  Company Number: AR-BIOGEN-2022BI01123902

PATIENT
  Age: 2 Year
  Sex: Male

DRUGS (1)
  1. SPINRAZA [Suspect]
     Active Substance: NUSINERSEN
     Indication: Spinal muscular atrophy
     Dosage: MAINTEINANCE DOSE: 12 MG EVERY FOUR MONTHS
     Route: 037
     Dates: start: 20210128

REACTIONS (2)
  - Pneumonia necrotising [Not Recovered/Not Resolved]
  - Pleural effusion [Not Recovered/Not Resolved]

NARRATIVE: CASE EVENT DATE: 20220401
